FAERS Safety Report 14813739 (Version 1)
Quarter: 2018Q2

REPORT INFORMATION
  Report Type: Spontaneous
  Country: US (occurrence: US)
  Receive Date: 20180402
  Receipt Date: 20180402
  Transmission Date: 20180711
  Serious: Yes (Death)
  Sender: FDA-Public Use
  Company Number: None

PATIENT
  Age: 82 Year
  Sex: Male
  Weight: 94 kg

DRUGS (17)
  1. VITAMIN D [Concomitant]
     Active Substance: CHOLECALCIFEROL
  2. DIFLUCAN [Concomitant]
     Active Substance: FLUCONAZOLE
  3. COUMADIN [Concomitant]
     Active Substance: WARFARIN SODIUM
  4. FUROSEMIDE. [Concomitant]
     Active Substance: FUROSEMIDE
  5. LIPITOR [Concomitant]
     Active Substance: ATORVASTATIN CALCIUM
  6. ALDACTONE [Concomitant]
     Active Substance: SPIRONOLACTONE
  7. FLOMAX [Concomitant]
     Active Substance: TAMSULOSIN HYDROCHLORIDE
  8. FISH OIL [Concomitant]
     Active Substance: FISH OIL
  9. LANTUS [Concomitant]
     Active Substance: INSULIN GLARGINE
  10. COLCHICINE. [Concomitant]
     Active Substance: COLCHICINE
  11. COUMADIN [Concomitant]
     Active Substance: WARFARIN SODIUM
  12. IMDUR [Concomitant]
     Active Substance: ISOSORBIDE MONONITRATE
  13. PRILOSEC [Concomitant]
     Active Substance: OMEPRAZOLE MAGNESIUM
  14. TOPROL XL [Concomitant]
     Active Substance: METOPROLOL SUCCINATE
  15. LISINOPRIL. [Concomitant]
     Active Substance: LISINOPRIL
  16. PREDNISONE. [Suspect]
     Active Substance: PREDNISONE
     Indication: IMMUNE THROMBOCYTOPENIC PURPURA
     Dates: start: 20180124, end: 20180309
  17. NEURONTIN [Concomitant]
     Active Substance: GABAPENTIN

REACTIONS (6)
  - Dysphonia [None]
  - Dysphagia [None]
  - Myopathy [None]
  - Therapy non-responder [None]
  - Bulbar palsy [None]
  - Aspiration [None]

NARRATIVE: CASE EVENT DATE: 20180301
